FAERS Safety Report 19507606 (Version 1)
Quarter: 2021Q3

REPORT INFORMATION
  Report Type: Spontaneous
  Country: US (occurrence: US)
  Receive Date: 20210708
  Receipt Date: 20210708
  Transmission Date: 20211014
  Serious: No
  Sender: FDA-Public Use
  Company Number: US-BIODELIVERY SCIENCES INTERNATIONAL-2021BDSI0040

PATIENT
  Sex: Female

DRUGS (2)
  1. BUPRENORPHINE. [Suspect]
     Active Substance: BUPRENORPHINE
     Indication: PRODUCT USED FOR UNKNOWN INDICATION
     Route: 002
  2. BUPRENORPHINE. [Suspect]
     Active Substance: BUPRENORPHINE
     Dosage: 2 FILMS; TWICE A DAY
     Route: 002

REACTIONS (4)
  - Abdominal discomfort [Not Recovered/Not Resolved]
  - Therapeutic response decreased [Unknown]
  - Oedema peripheral [Not Recovered/Not Resolved]
  - Extrasystoles [Not Recovered/Not Resolved]
